FAERS Safety Report 8623152 (Version 5)
Quarter: 2013Q2

REPORT INFORMATION
  Report Type: Spontaneous
  Country: US (occurrence: US)
  Receive Date: 20120620
  Receipt Date: 20130503
  Transmission Date: 20140414
  Serious: No
  Sender: FDA-Public Use
  Company Number: US-PFIZER INC-2012144822

PATIENT
  Age: 58 Year
  Sex: Female
  Weight: 79.37 kg

DRUGS (29)
  1. SUTENT [Suspect]
     Indication: PANCREATIC NEUROENDOCRINE TUMOUR
     Dosage: 37.5 MG (12.5 + 25 CAPSULES), 1X/DAY
     Route: 048
     Dates: start: 20120329
  2. SUTENT [Suspect]
     Dosage: 37.5 MG, (12.5MG+25MG)
     Dates: start: 20120427
  3. HYDROCHLOROTHIAZIDE [Concomitant]
     Indication: BLOOD PRESSURE ABNORMAL
     Dosage: 25 MG, 1X/DAY IN THE EVENING
  4. HYDROCHLOROTHIAZIDE [Concomitant]
     Indication: BLOOD PRESSURE
  5. ATENOLOL [Concomitant]
     Indication: BLOOD PRESSURE ABNORMAL
     Dosage: 50 MG, 1X/DAY IN THE EVENING
  6. ATENOLOL [Concomitant]
     Indication: BLOOD PRESSURE
  7. NORVASC [Concomitant]
     Indication: BLOOD PRESSURE ABNORMAL
     Dosage: 5 MG, 1X/DAY IN THE EVENING
  8. FISH OIL [Concomitant]
  9. VENTOLIN HFA [Concomitant]
     Indication: DYSPNOEA
     Dosage: 108 MCG/ACT 2 PUFF PER 4 HOUR AS NEEDED.
  10. ALPHAGAN [Concomitant]
     Dosage: 5 ML, 2X/DAY (IN LEFT EYE)
     Route: 047
  11. NASONEX [Concomitant]
     Indication: HYPERSENSITIVITY
     Dosage: 50MG/ACT, 1-2 SPRAYS/NOSTRILL DAILY
     Route: 045
  12. NASONEX [Concomitant]
     Dosage: UNK, AS NEEDED
  13. TREXIMET [Concomitant]
     Indication: MIGRAINE
     Dosage: 85-500MG, PER 6 HOUR AS NEEDED.
     Route: 048
  14. VITAMIN D [Concomitant]
     Indication: HYPOVITAMINOSIS
     Dosage: 500000 UNIT, PER WEEK
     Route: 048
  15. TYLENOL W/CODEINE NO. 3 [Concomitant]
     Indication: PAIN
     Dosage: 300-30 MG EVERY 4 HOURS AS NEEDED
  16. TRIAMCINOLONE ACETONIDE [Concomitant]
     Indication: RASH
     Dosage: 0.025 %, 2X/DAY, (AS NEEDED)
     Route: 061
  17. HYDROQUINONE [Concomitant]
     Indication: SKIN HYPERPIGMENTATION
     Dosage: 4 %, 2X/DAY
     Route: 061
  18. SINGULAIR [Concomitant]
     Indication: HYPERSENSITIVITY
     Dosage: 10 MG, 1X/DAY
  19. ALAVERT [Concomitant]
     Dosage: 10 MG, 1X/DAY
     Route: 048
  20. PRILOSEC [Concomitant]
     Dosage: 20 MG, 2X/DAY
     Route: 048
  21. FUROSEMIDE [Concomitant]
     Dosage: 40 MG, 1X/DAY
     Route: 048
  22. PROCHLORPERAZINE MALEATE [Concomitant]
     Indication: NAUSEA
     Dosage: 10 MG, EVERY 6 HOURS, AS NEEDED
  23. EMLA [Concomitant]
     Dosage: 2.5-2.5% 1-2 HOURS PRIOR TO TREATMENT. (AS DIRECTED)
     Route: 061
  24. OXYCODONE HYDROCHLORIDE [Concomitant]
     Indication: PAIN
     Dosage: 5 MG, TAKE 1-2 EVERY 3 HOURS AS NEEDED.
     Route: 048
  25. FLONASE [Concomitant]
     Dosage: 50MCG/ACT, 1-2 INH DAILY
     Route: 045
  26. LORATADINE [Concomitant]
     Indication: HYPERSENSITIVITY
     Dosage: 5-120MG 2X/DAY, AS NEEDED
     Route: 048
  27. AMLODIPINE [Concomitant]
     Dosage: UNK
  28. ASPIRIN [Concomitant]
     Dosage: 81 MG, UNK
  29. VITAMIN D3 [Concomitant]
     Dosage: UNK

REACTIONS (21)
  - Therapeutic response unexpected [Unknown]
  - Glossodynia [Unknown]
  - Dysgeusia [Unknown]
  - Hypersensitivity [Unknown]
  - Epistaxis [Unknown]
  - Neuropathy peripheral [Unknown]
  - Skin hypopigmentation [Not Recovered/Not Resolved]
  - Hypoaesthesia [Recovered/Resolved]
  - Memory impairment [Unknown]
  - Anxiety [Recovering/Resolving]
  - Influenza [Recovering/Resolving]
  - Pyrexia [Recovering/Resolving]
  - Pain [Recovering/Resolving]
  - Sputum discoloured [Recovering/Resolving]
  - Erythema [Unknown]
  - Hyperkeratosis [Unknown]
  - Skin discolouration [Unknown]
  - Blister [Unknown]
  - Skin papilloma [Not Recovered/Not Resolved]
  - Skin discolouration [Not Recovered/Not Resolved]
  - Tongue discolouration [Unknown]
